FAERS Safety Report 4444639-6 (Version None)
Quarter: 2004Q3

REPORT INFORMATION
  Report Type: 
  Country: None (occurrence: None)
  Receive Date: 20040909
  Receipt Date: 20040831
  Transmission Date: 20050211
  Serious: Yes (Hospitalization)
  Sender: FDA-Public Use
  Company Number: US-JNJFOC-20040604164

PATIENT
  Sex: Male

DRUGS (1)
  1. DURAGESIC [Suspect]
     Route: 062
     Dates: start: 20040512, end: 20040514

REACTIONS (4)
  - CONFUSIONAL STATE [None]
  - FALL [None]
  - GOUT [None]
  - PYREXIA [None]
